FAERS Safety Report 6333183-7 (Version None)
Quarter: 2009Q3

REPORT INFORMATION
  Report Type: 
  Country: None (occurrence: None)
  Receive Date: 20090828
  Receipt Date: 20090818
  Transmission Date: 20100115
  Serious: Yes (Death)
  Sender: FDA-Public Use
  Company Number: FR-ROCHE-651163

PATIENT
  Sex: Male

DRUGS (15)
  1. KYTRIL [Suspect]
     Indication: DRUG USE FOR UNKNOWN INDICATION
     Route: 042
     Dates: start: 20081013, end: 20081013
  2. VECTIBIX [Suspect]
     Indication: DRUG USE FOR UNKNOWN INDICATION
     Dosage: FORM: INFUSION
     Route: 042
     Dates: start: 20081013, end: 20081013
  3. METHYLPREDNISOLONE [Suspect]
     Indication: DRUG USE FOR UNKNOWN INDICATION
     Route: 042
     Dates: start: 20081013, end: 20081013
  4. METOCLOPRAMIDE [Suspect]
     Indication: DRUG USE FOR UNKNOWN INDICATION
     Dosage: FREQUENCY: ONCE
     Route: 042
     Dates: start: 20081013, end: 20081013
  5. SOLUPRED [Concomitant]
  6. TRACLEER [Concomitant]
  7. LASIX [Concomitant]
  8. DIFFU K [Concomitant]
  9. PREVISCAN [Concomitant]
  10. PLAVIX [Concomitant]
  11. TEMERIT [Concomitant]
  12. TAREG [Concomitant]
  13. SPIRIVA [Concomitant]
  14. FORADIL [Concomitant]
  15. DAFALGAN [Concomitant]

REACTIONS (1)
  - CARDIO-RESPIRATORY ARREST [None]
